FAERS Safety Report 5323992-5 (Version None)
Quarter: 2007Q2

REPORT INFORMATION
  Report Type: 
  Country: None (occurrence: None)
  Receive Date: 20070509
  Receipt Date: 20070509
  Transmission Date: 20071010
  Serious: Yes (Other)
  Sender: FDA-Public Use
  Company Number: None

PATIENT
  Age: 5 Year
  Sex: Male
  Weight: 41.2773 kg

DRUGS (1)
  1. ANDROGEL [Suspect]
     Indication: BLOOD TESTOSTERONE DECREASED
     Dosage: 10 GRAMS DAILY TOP
     Route: 061
     Dates: start: 20060912, end: 20070323

REACTIONS (2)
  - ACCIDENTAL EXPOSURE [None]
  - PRECOCIOUS PUBERTY [None]
